FAERS Safety Report 22178492 (Version 2)
Quarter: 2023Q2

REPORT INFORMATION
  Report Type: Spontaneous
  Country: MX (occurrence: MX)
  Receive Date: 20230405
  Receipt Date: 20230417
  Transmission Date: 20230722
  Serious: Yes (Hospitalization, Other)
  Sender: FDA-Public Use
  Company Number: MX-MLMSERVICE-20230322-4177819-1

PATIENT
  Age: 52 Year
  Sex: Male

DRUGS (2)
  1. DEXAMETHASONE [Suspect]
     Active Substance: DEXAMETHASONE
     Indication: COVID-19 pneumonia
     Route: 065
     Dates: start: 2021, end: 2021
  2. OXYGEN [Concomitant]
     Active Substance: OXYGEN
     Indication: Oxygen therapy
     Dates: start: 2021

REACTIONS (5)
  - Cavernous sinus syndrome [Recovering/Resolving]
  - Lymphopenia [Recovering/Resolving]
  - Hyperglycaemia [Recovering/Resolving]
  - Cavernous sinus thrombosis [Recovering/Resolving]
  - Rhinocerebral mucormycosis [Recovered/Resolved]

NARRATIVE: CASE EVENT DATE: 20210101
